FAERS Safety Report 5655923-2 (Version None)
Quarter: 2008Q1

REPORT INFORMATION
  Report Type: 
  Country: None (occurrence: None)
  Receive Date: 20080307
  Receipt Date: 20080303
  Transmission Date: 20080703
  Serious: Yes (Hospitalization)
  Sender: FDA-Public Use
  Company Number: NL-BOEHRINGER INGELHEIM GMBH, GERMANY-2008-BP-03154RO

PATIENT
  Age: 47 Year
  Sex: Female

DRUGS (6)
  1. AMLODIPINE [Suspect]
     Indication: SUICIDE ATTEMPT
     Route: 048
  2. LORAZEPAM [Suspect]
     Indication: SUICIDE ATTEMPT
     Route: 048
  3. MAGNESIUM SULFATE [Concomitant]
     Indication: INTENTIONAL OVERDOSE
     Route: 048
  4. ACTIVATED CHARCOAL [Concomitant]
     Indication: INTENTIONAL OVERDOSE
     Route: 048
  5. POTASSIUM CHLORIDE [Concomitant]
     Indication: HYPOKALAEMIA
     Route: 048
  6. 4-AMINOPYRIDINE [Concomitant]
     Indication: DRUG TOXICITY
     Route: 042

REACTIONS (2)
  - DRUG TOXICITY [None]
  - INTENTIONAL OVERDOSE [None]
